FAERS Safety Report 6546696-X (Version None)
Quarter: 2010Q1

REPORT INFORMATION
  Report Type: 
  Country: None (occurrence: None)
  Receive Date: 20100122
  Receipt Date: 20090403
  Transmission Date: 20100710
  Serious: Yes (Death, Other)
  Sender: FDA-Public Use
  Company Number: DE-ROCHE-626417

PATIENT
  Sex: Female
  Weight: 80 kg

DRUGS (3)
  1. BEVACIZUMAB [Suspect]
     Route: 065
     Dates: start: 20071207
  2. CARBOPLATIN [Suspect]
     Route: 042
     Dates: start: 20071116
  3. PACLITAXEL [Suspect]
     Route: 042
     Dates: start: 20071116

REACTIONS (2)
  - IMPAIRED HEALING [None]
  - PNEUMONIA [None]
